FAERS Safety Report 8541004-7 (Version None)
Quarter: 2012Q3

REPORT INFORMATION
  Report Type: 
  Country: None (occurrence: None)
  Receive Date: 20120726
  Receipt Date: 20110815
  Transmission Date: 20120928
  Serious: No
  Sender: FDA-Public Use
  Company Number: US-ASTRAZENECA-2011SE48741

PATIENT
  Sex: Female
  Weight: 36.3 kg

DRUGS (2)
  1. SEROQUEL [Suspect]
     Indication: HALLUCINATION
     Dosage: DAILY
     Route: 048
  2. HALDOL [Concomitant]

REACTIONS (2)
  - WEIGHT DECREASED [None]
  - PAIN IN EXTREMITY [None]
